FAERS Safety Report 5046830-7 (Version None)
Quarter: 2006Q3

REPORT INFORMATION
  Report Type: 
  Country: None (occurrence: None)
  Receive Date: 20060705
  Receipt Date: 20060705
  Transmission Date: 20061208
  Serious: No
  Sender: FDA-Public Use
  Company Number: None

PATIENT
  Age: 79 Year
  Sex: Female

DRUGS (1)
  1. MACUGEN [Suspect]
     Indication: MACULAR DEGENERATION
     Route: 065
     Dates: start: 20051101, end: 20060101

REACTIONS (4)
  - CHEMICAL EYE INJURY [None]
  - DERMATITIS [None]
  - DYSPNOEA [None]
  - SYNCOPE [None]
